FAERS Safety Report 9733107 (Version 1)
Quarter: 2013Q4

REPORT INFORMATION
  Report Type: Spontaneous
  Country: GB (occurrence: GB)
  Receive Date: 20131205
  Receipt Date: 20131205
  Transmission Date: 20140711
  Serious: Yes (Life-Threatening)
  Sender: FDA-Public Use
  Company Number: PHHY2013GB136580

PATIENT
  Age: 80 Year
  Sex: Female
  Weight: 58.5 kg

DRUGS (9)
  1. ALENDRONIC ACID [Suspect]
     Indication: OSTEOPOROSIS
     Dosage: 70 MG, QW
     Route: 048
     Dates: start: 20081208, end: 20130215
  2. OMEPRAZOLE [Concomitant]
     Indication: GASTROOESOPHAGEAL REFLUX DISEASE
     Dosage: 20 MG, QD
     Dates: start: 20070330
  3. NITROFURANTOIN [Concomitant]
     Indication: URINARY TRACT INFECTION
     Dosage: AT NIGHT.
     Dates: start: 20120712, end: 20130117
  4. CO-CODAMOL [Concomitant]
     Indication: OSTEOARTHRITIS
     Dosage: UNK 8/500
     Dates: start: 20050915
  5. ADCAL-D3 [Concomitant]
  6. LACTULOSE [Concomitant]
  7. IBUPROFEN [Concomitant]
     Indication: OSTEOARTHRITIS
     Dates: start: 20120912
  8. IBUPROFEN [Concomitant]
     Dosage: 400 MG, TID
     Dates: start: 20130213, end: 20130313
  9. IBUPROFEN [Concomitant]
     Dates: end: 20120523

REACTIONS (1)
  - Oesophageal cancer metastatic [Unknown]
